FAERS Safety Report 7366421-2 (Version None)
Quarter: 2011Q1

REPORT INFORMATION
  Report Type: 
  Country: None (occurrence: None)
  Receive Date: 20110322
  Receipt Date: 20110308
  Transmission Date: 20110831
  Serious: Yes (Hospitalization, Other)
  Sender: FDA-Public Use
  Company Number: US-JNJFOC-20100110028

PATIENT
  Sex: Female
  Weight: 72 kg

DRUGS (4)
  1. REMICADE [Suspect]
     Dosage: MAINTENANCE THERAPY
     Route: 042
  2. REMICADE [Suspect]
     Indication: CROHN'S DISEASE
     Dosage: 18TH INFUSION
     Route: 042
  3. REMICADE [Suspect]
     Dosage: 18TH INFUSION
     Route: 042
  4. REMICADE [Suspect]
     Indication: INFLAMMATORY BOWEL DISEASE
     Dosage: MAINTENANCE THERAPY
     Route: 042

REACTIONS (2)
  - ADHESION [None]
  - INTESTINAL OBSTRUCTION [None]
